FAERS Safety Report 17542910 (Version 11)
Quarter: 2021Q3

REPORT INFORMATION
  Report Type: Report from Study
  Country: US (occurrence: US)
  Receive Date: 20200316
  Receipt Date: 20210910
  Transmission Date: 20211014
  Serious: Yes (Hospitalization, Other)
  Sender: FDA-Public Use
  Company Number: US-SHIRE-US202009854

PATIENT
  Age: 45 Year
  Sex: Female

DRUGS (14)
  1. PARATHYROID HORMONE [Suspect]
     Active Substance: PARATHYROID HORMONE
     Indication: POST PROCEDURAL HYPOPARATHYROIDISM
     Dosage: 100 MICROGRAM, 1X/DAY QD
     Route: 058
     Dates: start: 201810
  2. PARATHYROID HORMONE [Suspect]
     Active Substance: PARATHYROID HORMONE
     Indication: HYPOPARATHYROIDISM
     Dosage: 50 MICROGRAM, 1X/DAY,QD
     Route: 058
  3. PARATHYROID HORMONE [Suspect]
     Active Substance: PARATHYROID HORMONE
     Indication: POST PROCEDURAL HYPOPARATHYROIDISM
     Dosage: 100 MICROGRAM, 1X/DAY QD
     Route: 058
     Dates: start: 201810
  4. PARATHYROID HORMONE [Suspect]
     Active Substance: PARATHYROID HORMONE
     Indication: HYPOPARATHYROIDISM
     Dosage: 50 MICROGRAM, 1X/DAY,QD
     Route: 058
  5. PARATHYROID HORMONE [Suspect]
     Active Substance: PARATHYROID HORMONE
     Dosage: 100 MICROGRAM, QD
     Route: 058
     Dates: start: 20190117
  6. PARATHYROID HORMONE [Suspect]
     Active Substance: PARATHYROID HORMONE
     Dosage: 100 MICROGRAM, QD
     Route: 058
     Dates: start: 20190117
  7. CALCITRIOL. [Concomitant]
     Active Substance: CALCITRIOL
     Route: 065
  8. TYMLOS [Concomitant]
     Active Substance: ABALOPARATIDE
     Route: 065
  9. PARATHYROID HORMONE [Suspect]
     Active Substance: PARATHYROID HORMONE
     Indication: HYPOPARATHYROIDISM
     Dosage: 50 MICROGRAM, 1X/DAY,QD
     Route: 058
  10. CALCIUM CARBONATE. [Concomitant]
     Active Substance: CALCIUM CARBONATE
     Route: 065
  11. ERGOCALCIFEROL. [Concomitant]
     Active Substance: ERGOCALCIFEROL
     Route: 065
  12. PARATHYROID HORMONE [Suspect]
     Active Substance: PARATHYROID HORMONE
     Dosage: 100 MICROGRAM, QD
     Route: 058
     Dates: start: 20190117
  13. PARATHYROID HORMONE [Suspect]
     Active Substance: PARATHYROID HORMONE
     Indication: POST PROCEDURAL HYPOPARATHYROIDISM
     Dosage: 100 MICROGRAM, 1X/DAY QD
     Route: 058
     Dates: start: 201810
  14. HCTZ [Concomitant]
     Active Substance: HYDROCHLOROTHIAZIDE
     Route: 065

REACTIONS (9)
  - Blood calcium decreased [Recovering/Resolving]
  - Electrocardiogram abnormal [Unknown]
  - COVID-19 [Not Recovered/Not Resolved]
  - Recalled product [Unknown]
  - Injection site swelling [Recovered/Resolved]
  - Product distribution issue [Recovering/Resolving]
  - Malaise [Unknown]
  - Blood calcium abnormal [Recovered/Resolved]
  - Product dose omission issue [Recovering/Resolving]

NARRATIVE: CASE EVENT DATE: 20201111
